FAERS Safety Report 6825003-9 (Version None)
Quarter: 2010Q3

REPORT INFORMATION
  Report Type: 
  Country: None (occurrence: None)
  Receive Date: 20100708
  Receipt Date: 20061206
  Transmission Date: 20110219
  Serious: No
  Sender: FDA-Public Use
  Company Number: US-PFIZER INC-2006151847

PATIENT
  Sex: Female

DRUGS (2)
  1. CHANTIX [Suspect]
  2. MULTI-VITAMINS [Concomitant]

REACTIONS (2)
  - NAUSEA [None]
  - VISION BLURRED [None]
